FAERS Safety Report 26126692 (Version 3)
Quarter: 2025Q4

REPORT INFORMATION
  Report Type: Spontaneous
  Country: JP (occurrence: JP)
  Receive Date: 20251205
  Receipt Date: 20251231
  Transmission Date: 20260118
  Serious: Yes (Death, Other)
  Sender: MERCK SHARP & DOHME LLC
  Company Number: JP-009507513-2357441

PATIENT
  Age: 5 Decade
  Sex: Male

DRUGS (4)
  1. SOTATERCEPT [Suspect]
     Active Substance: SOTATERCEPT
     Indication: Pulmonary arterial hypertension
     Dosage: LAST ADMIN DATE: 2025
     Route: 058
     Dates: start: 20250902
  2. OPSUMIT [Concomitant]
     Active Substance: MACITENTAN
     Indication: Pulmonary arterial hypertension
     Route: 048
  3. ADCIRCA [Concomitant]
     Active Substance: TADALAFIL
     Indication: Pulmonary arterial hypertension
     Route: 048
  4. EPOPROSTENOL [Concomitant]
     Active Substance: EPOPROSTENOL
     Indication: Pulmonary arterial hypertension
     Route: 041

REACTIONS (4)
  - General physical health deterioration [Fatal]
  - Thoracotomy [Unknown]
  - Oxygen saturation decreased [Fatal]
  - Adhesiolysis [Unknown]

NARRATIVE: CASE EVENT DATE: 20250101
